FAERS Safety Report 22337585 (Version 4)
Quarter: 2025Q3

REPORT INFORMATION
  Report Type: Spontaneous
  Country: CA (occurrence: None)
  Receive Date: 20230518
  Receipt Date: 20250827
  Transmission Date: 20251021
  Serious: Yes (Other)
  Sender: ORION
  Company Number: CA-PFIZER INC-202200755319

PATIENT
  Age: 42 Year
  Sex: Female

DRUGS (22)
  1. METHOTREXATE [Suspect]
     Active Substance: METHOTREXATE
     Indication: Crohn^s disease
  2. METHOTREXATE [Suspect]
     Active Substance: METHOTREXATE
  3. METHOTREXATE [Suspect]
     Active Substance: METHOTREXATE
     Dates: start: 20250208, end: 2025
  4. AMLODIPINE [Concomitant]
     Active Substance: AMLODIPINE BESYLATE
     Indication: Hypertension
  5. BETAMETHASONE DIPROPIONATE [Concomitant]
     Active Substance: BETAMETHASONE DIPROPIONATE
     Dosage: ONCE A DAY AS NEEDED
  6. BUDESONIDE\FORMOTEROL [Concomitant]
     Active Substance: BUDESONIDE\FORMOTEROL
     Dosage: 6 PLUS 200 MCG TWICE A DAY AS NEEDED
  7. CHOLESTYRAMINE [Concomitant]
     Active Substance: CHOLESTYRAMINE
     Dosage: MIX SACHET CONTENT IN 120-180 ML OF WATER
  8. DESONIDE [Concomitant]
     Active Substance: DESONIDE
     Indication: Dermatitis
  9. FOLIC ACID [Concomitant]
     Active Substance: FOLIC ACID
     Dosage: NOT ON SAME DAY AS METHOTREXATE
  10. FERROUS SULFATE [Concomitant]
     Active Substance: FERROUS SULFATE
  11. INFLECTRA [Concomitant]
     Active Substance: INFLIXIMAB-DYYB
     Indication: Crohn^s disease
     Dates: start: 20220611
  12. INFLECTRA [Concomitant]
     Active Substance: INFLIXIMAB-DYYB
     Dates: start: 20230401
  13. INFLECTRA [Concomitant]
     Active Substance: INFLIXIMAB-DYYB
  14. MOMETASONE [Concomitant]
     Active Substance: MOMETASONE
     Dosage: 2 PUFFS IN EACH NOSTRIL A DAY
  15. METRONIDAZOLE [Concomitant]
     Active Substance: METRONIDAZOLE
  16. PANTOPRAZOLE [Concomitant]
     Active Substance: PANTOPRAZOLE
  17. ALBUTEROL [Concomitant]
     Active Substance: ALBUTEROL
     Dosage: 2 PUFFS UP TO 4 TIMES PER DAY AS NEEDED
  18. TERBINAFINE [Concomitant]
     Active Substance: TERBINAFINE
     Dosage: ONCE A DAY AS NEEDED
  19. VITAMIN B12 [Concomitant]
     Active Substance: CYANOCOBALAMIN
  20. VITAMIN D3 [Concomitant]
     Active Substance: CHOLECALCIFEROL
  21. CHOLESTYRAMINE [Concomitant]
     Active Substance: CHOLESTYRAMINE
  22. FERROUS SULFATE ANHYDROUS [Concomitant]
     Active Substance: FERROUS SULFATE ANHYDROUS

REACTIONS (7)
  - Product use in unapproved indication [Unknown]
  - Inflammatory bowel disease [Unknown]
  - Crohn^s disease [Unknown]
  - Abdominal discomfort [Unknown]
  - Diarrhoea [Unknown]
  - Drug level above therapeutic [Unknown]
  - Weight decreased [Unknown]

NARRATIVE: CASE EVENT DATE: 20230101
